FAERS Safety Report 13662175 (Version 1)
Quarter: 2017Q2

REPORT INFORMATION
  Report Type: Report from Study
  Country: None (occurrence: US)
  Receive Date: 20170616
  Receipt Date: 20170616
  Transmission Date: 20170830
  Serious: Yes (Other)
  Sender: FDA-Public Use
  Company Number: US-ABBVIE-17P-163-2010487-00

PATIENT
  Age: 78 Year
  Sex: Female
  Weight: 54.9 kg

DRUGS (18)
  1. POTASSIUM CHLORIDE. [Concomitant]
     Active Substance: POTASSIUM CHLORIDE
     Indication: HYPOKALAEMIA
     Dates: start: 20150421, end: 20160720
  2. RITUXIMAB [Suspect]
     Active Substance: RITUXIMAB
     Indication: B-CELL LYMPHOMA
     Route: 042
     Dates: start: 20150318, end: 20150804
  3. LACTOBACILLUS (ACIDOPHILUS) [Concomitant]
     Indication: ROUTINE HEALTH MAINTENANCE
     Dates: start: 201001
  4. OMEGA-3 FATTY ACIDS (FISH OIL) [Concomitant]
     Indication: ROUTINE HEALTH MAINTENANCE
     Dates: start: 200501
  5. VALSARTAN-HYDROCHLOROTHIAZIDE (DIOVAN-HCT) [Concomitant]
     Indication: HYPERTENSION
     Dates: start: 201001
  6. MULTIPLE VITAMIN [Concomitant]
     Active Substance: VITAMINS
     Indication: ROUTINE HEALTH MAINTENANCE
     Dates: start: 200501
  7. VITAMIN B COMPLEX-C CAPS [Concomitant]
     Indication: ROUTINE HEALTH MAINTENANCE
     Dates: start: 201001
  8. COENZYME Q10 [Concomitant]
     Active Substance: UBIDECARENONE
     Indication: ROUTINE HEALTH MAINTENANCE
     Dates: start: 200501
  9. LUNESTA [Concomitant]
     Active Substance: ESZOPICLONE
     Indication: INSOMNIA
     Dates: start: 20150416
  10. ASPIRIN. [Concomitant]
     Active Substance: ASPIRIN
     Indication: HYPERTENSION
     Dates: start: 201001
  11. ROSUVASTATIN (CRESTOR) [Concomitant]
     Indication: BLOOD CHOLESTEROL INCREASED
     Dates: start: 201001
  12. VENETOCLAX [Suspect]
     Active Substance: VENETOCLAX
     Indication: B-CELL LYMPHOMA
     Route: 048
     Dates: start: 20150318, end: 20160316
  13. ASCORBIC ACID. [Concomitant]
     Active Substance: ASCORBIC ACID
     Indication: ROUTINE HEALTH MAINTENANCE
     Dates: start: 201001
  14. CALCIUM-MAGNESIUM [Concomitant]
     Active Substance: CALCIUM\MAGNESIUM
     Indication: ROUTINE HEALTH MAINTENANCE
     Dates: start: 201001
  15. CHOLECALCIFEROL (VITAMIN D) [Concomitant]
     Indication: ROUTINE HEALTH MAINTENANCE
     Dates: start: 201001
  16. BENDAMUSTINE [Suspect]
     Active Substance: BENDAMUSTINE
     Indication: B-CELL LYMPHOMA
     Route: 042
     Dates: start: 20150318, end: 20150805
  17. CARVEDILOL (COREG) [Concomitant]
     Indication: HYPERTENSION
     Dates: start: 201001
  18. DICYCLOMINE (BENTYL) [Concomitant]
     Indication: ABDOMINAL PAIN
     Dates: start: 20150619

REACTIONS (1)
  - Myelodysplastic syndrome [Not Recovered/Not Resolved]

NARRATIVE: CASE EVENT DATE: 20160805
